FAERS Safety Report 5395606-X (Version None)
Quarter: 2007Q3

REPORT INFORMATION
  Report Type: 
  Country: None (occurrence: None)
  Receive Date: 20070718
  Receipt Date: 20060522
  Transmission Date: 20080115
  Serious: Yes (Hospitalization)
  Sender: FDA-Public Use
  Company Number: 2006067095

PATIENT
  Age: 59 Year
  Sex: Male

DRUGS (2)
  1. CELEBREX [Suspect]
     Indication: ILL-DEFINED DISORDER
     Dates: start: 19990201
  2. VIOXX [Suspect]
     Indication: ILL-DEFINED DISORDER
     Dates: start: 19991101

REACTIONS (1)
  - ACUTE MYOCARDIAL INFARCTION [None]
